FAERS Safety Report 17333935 (Version 4)
Quarter: 2020Q1

REPORT INFORMATION
  Report Type: Report from Study
  Country: None (occurrence: US)
  Receive Date: 20200128
  Receipt Date: 20200225
  Transmission Date: 20200409
  Serious: Yes (Other)
  Sender: FDA-Public Use
  Company Number: US-ABBVIE-20K-163-3219108-00

PATIENT
  Age: 65 Year
  Sex: Female
  Weight: 67.19 kg

DRUGS (12)
  1. COREG [Concomitant]
     Active Substance: CARVEDILOL
     Indication: HYPERTENSION
  2. PLAVIX [Concomitant]
     Active Substance: CLOPIDOGREL BISULFATE
     Indication: CARDIAC DISORDER
  3. TYLENOL WITH CODEINE [Concomitant]
     Active Substance: ACETAMINOPHEN\CODEINE PHOSPHATE
     Indication: HEADACHE
  4. HUMIRA [Suspect]
     Active Substance: ADALIMUMAB
     Indication: CROHN^S DISEASE
     Dosage: CITRATE FREE
     Route: 058
     Dates: start: 20190201
  5. FLEXERIL [Concomitant]
     Active Substance: CYCLOBENZAPRINE HYDROCHLORIDE
     Indication: MUSCLE RELAXANT THERAPY
  6. LISINOPRIL. [Concomitant]
     Active Substance: LISINOPRIL
     Indication: HYPERTENSION
  7. TIMOLOL. [Concomitant]
     Active Substance: TIMOLOL
     Indication: EYE DISORDER
  8. ROSUVASTATIN. [Concomitant]
     Active Substance: ROSUVASTATIN
     Indication: BLOOD CHOLESTEROL INCREASED
  9. ZETIA [Concomitant]
     Active Substance: EZETIMIBE
     Indication: HYPERTENSION
  10. CYMBALTA [Concomitant]
     Active Substance: DULOXETINE HYDROCHLORIDE
     Indication: PRODUCT USED FOR UNKNOWN INDICATION
  11. KLONOPIN [Concomitant]
     Active Substance: CLONAZEPAM
     Indication: ANXIETY
  12. PROAIR HFA [Concomitant]
     Active Substance: ALBUTEROL SULFATE
     Indication: RESPIRATORY DISORDER

REACTIONS (20)
  - Incorrect dose administered [Recovered/Resolved]
  - Angina pectoris [Recovered/Resolved]
  - Skin depigmentation [Unknown]
  - Migraine [Unknown]
  - Wrong technique in product usage process [Recovered/Resolved]
  - Cataract [Recovered/Resolved]
  - Needle issue [Unknown]
  - Clostridium difficile infection [Unknown]
  - Nervousness [Not Recovered/Not Resolved]
  - Rash pustular [Unknown]
  - Rash macular [Unknown]
  - Lens dislocation [Not Recovered/Not Resolved]
  - Visual impairment [Not Recovered/Not Resolved]
  - Injection site pain [Recovered/Resolved]
  - Rash papular [Unknown]
  - Skin disorder [Unknown]
  - Glaucoma [Not Recovered/Not Resolved]
  - Injection site haemorrhage [Unknown]
  - Drug hypersensitivity [Unknown]
  - Pruritus [Unknown]

NARRATIVE: CASE EVENT DATE: 2019
